FAERS Safety Report 13360147 (Version 1)
Quarter: 2017Q1

REPORT INFORMATION
  Report Type: Spontaneous
  Country: AU (occurrence: AU)
  Receive Date: 20170322
  Receipt Date: 20170322
  Transmission Date: 20170429
  Serious: Yes (Other)
  Sender: FDA-Public Use
  Company Number: AU-PFIZER INC-AUWYE282123JAN07

PATIENT
  Sex: Male

DRUGS (1)
  1. EFFEXOR XR [Suspect]
     Active Substance: VENLAFAXINE HYDROCHLORIDE
     Dosage: UNK
     Route: 048
     Dates: start: 2003

REACTIONS (23)
  - Paraesthesia [Recovered/Resolved]
  - Dizziness [Recovered/Resolved]
  - Poor quality sleep [Recovered/Resolved]
  - Nausea [Recovered/Resolved]
  - Poor peripheral circulation [Not Recovered/Not Resolved]
  - Insomnia [Not Recovered/Not Resolved]
  - Irritable bowel syndrome [Not Recovered/Not Resolved]
  - Lethargy [Not Recovered/Not Resolved]
  - Irritability [Recovered/Resolved]
  - Muscle spasms [Recovered/Resolved]
  - Violence-related symptom [Not Recovered/Not Resolved]
  - Disturbance in attention [Recovered/Resolved]
  - Homicidal ideation [Not Recovered/Not Resolved]
  - Weight increased [Unknown]
  - Inappropriate schedule of drug administration [Recovered/Resolved]
  - Drug withdrawal syndrome [Not Recovered/Not Resolved]
  - Pruritus [Not Recovered/Not Resolved]
  - Suicidal ideation [Recovered/Resolved]
  - Vertigo [Recovered/Resolved]
  - Hyperhidrosis [Not Recovered/Not Resolved]
  - Apathy [Recovered/Resolved]
  - Loss of libido [Recovered/Resolved]
  - Fatigue [Not Recovered/Not Resolved]
